FAERS Safety Report 9442763 (Version 1)
Quarter: 2013Q3

REPORT INFORMATION
  Report Type: Report from Study
  Country: US (occurrence: US)
  Receive Date: 20130806
  Receipt Date: 20130806
  Transmission Date: 20140515
  Serious: No
  Sender: FDA-Public Use
  Company Number: US-ABBOTT-13P-163-1120625-00

PATIENT
  Age: 53 Year
  Sex: Female
  Weight: 88.53 kg

DRUGS (1)
  1. DEPAKOTE ER [Suspect]
     Indication: MANIA
     Dates: start: 20130304, end: 201306

REACTIONS (1)
  - Agitation [Not Recovered/Not Resolved]
